FAERS Safety Report 21465325 (Version 1)
Quarter: 2022Q4

REPORT INFORMATION
  Report Type: Spontaneous
  Country: US (occurrence: US)
  Receive Date: 20221017
  Receipt Date: 20221017
  Transmission Date: 20230112
  Serious: No
  Sender: FDA-Public Use
  Company Number: US-SA-SAC20221013000129

PATIENT
  Age: 23 Year
  Sex: Male

DRUGS (1)
  1. DUPIXENT [Suspect]
     Active Substance: DUPILUMAB
     Indication: Dermatitis atopic
     Dosage: 300 MG, QOW (300MG/2ML )
     Route: 058
     Dates: start: 20220402

REACTIONS (3)
  - Dermatitis atopic [Unknown]
  - Treatment noncompliance [Unknown]
  - Rash [Unknown]

NARRATIVE: CASE EVENT DATE: 20220101
